FAERS Safety Report 21511217 (Version 4)
Quarter: 2023Q2

REPORT INFORMATION
  Report Type: Report from Study
  Country: US (occurrence: US)
  Receive Date: 20221027
  Receipt Date: 20230418
  Transmission Date: 20230722
  Serious: Yes (Other)
  Sender: FDA-Public Use
  Company Number: US-ABBVIE-4175507

PATIENT
  Sex: Female

DRUGS (2)
  1. HUMIRA [Suspect]
     Active Substance: ADALIMUMAB
     Indication: Rheumatoid arthritis
     Dosage: CITRATE FREE INJECT 0.4 ML SUBCUTANEOUSLY EVERY TWO WEEKS IN THE ABDOMEN OR THIGH (ROTATE SITES)
     Route: 058
     Dates: start: 202207
  2. HUMIRA [Suspect]
     Active Substance: ADALIMUMAB
     Dosage: FORM STRENGTH- 40 MG
     Route: 058
     Dates: start: 202201, end: 2022

REACTIONS (5)
  - Surgery [Unknown]
  - Localised infection [Unknown]
  - Therapeutic product effect incomplete [Unknown]
  - Respiratory tract infection [Unknown]
  - Illness [Unknown]

NARRATIVE: CASE EVENT DATE: 20220101
